FAERS Safety Report 4323796-6 (Version None)
Quarter: 2004Q1

REPORT INFORMATION
  Report Type: 
  Country: None (occurrence: None)
  Receive Date: 20040323
  Receipt Date: 20040312
  Transmission Date: 20041129
  Serious: Yes (Other)
  Sender: FDA-Public Use
  Company Number: 2004-DE-01224GD(0)

PATIENT
  Sex: Male

DRUGS (3)
  1. AZATHIOPRINE [Suspect]
     Indication: CUTANEOUS SARCOIDOSIS
  2. METHOTREXATE [Suspect]
     Indication: CUTANEOUS SARCOIDOSIS
  3. PREDNISONE [Suspect]
     Indication: CUTANEOUS SARCOIDOSIS
     Dosage: NOT BELOW 40 MG/DAY FOR ALMOST 3 YEARS, PO
     Route: 048

REACTIONS (4)
  - ANGIOTENSIN CONVERTING ENZYME INCREASED [None]
  - DRUG EFFECT DECREASED [None]
  - INSULIN RESISTANT DIABETES [None]
  - LEUKOPENIA [None]
